FAERS Safety Report 13850041 (Version 1)
Quarter: 2017Q3

REPORT INFORMATION
  Report Type: Spontaneous
  Country: IN (occurrence: IN)
  Receive Date: 20170809
  Receipt Date: 20170809
  Transmission Date: 20171127
  Serious: No
  Sender: FDA-Public Use
  Company Number: IN-LUPIN PHARMACEUTICALS INC.-2017-02939

PATIENT
  Age: 3 Year
  Sex: Male

DRUGS (1)
  1. EPILIVE [Suspect]
     Active Substance: LEVETIRACETAM
     Indication: HYDROCEPHALUS
     Dosage: 1 ML, QD
     Route: 048
     Dates: start: 2016

REACTIONS (4)
  - Drug prescribing error [Unknown]
  - Drug administered to patient of inappropriate age [Unknown]
  - Product use in unapproved indication [Unknown]
  - No adverse event [Unknown]

NARRATIVE: CASE EVENT DATE: 2016
